FAERS Safety Report 16486609 (Version 1)
Quarter: 2019Q2

REPORT INFORMATION
  Report Type: Spontaneous
  Country: DK (occurrence: DK)
  Receive Date: 20190627
  Receipt Date: 20190627
  Transmission Date: 20190711
  Serious: Yes (Hospitalization)
  Sender: FDA-Public Use
  Company Number: DK-TEVA-2019-DK-1067367

PATIENT
  Age: 75 Year
  Sex: Female
  Weight: 120 kg

DRUGS (1)
  1. PRAMIPEXOLE. [Suspect]
     Active Substance: PRAMIPEXOLE
     Indication: OVERDOSE
     Dosage: 2.1 MILLIGRAM DAILY;
     Route: 065

REACTIONS (5)
  - Stereotypy [Recovering/Resolving]
  - Overdose [Recovering/Resolving]
  - Medication error [Recovering/Resolving]
  - Dyskinesia [Recovering/Resolving]
  - Toxicity to various agents [Recovering/Resolving]
